FAERS Safety Report 5487871-5 (Version None)
Quarter: 2007Q4

REPORT INFORMATION
  Report Type: 
  Country: None (occurrence: None)
  Receive Date: 20071017
  Receipt Date: 20071009
  Transmission Date: 20080405
  Serious: Yes (Hospitalization)
  Sender: FDA-Public Use
  Company Number: BR-JNJFOC-20071002859

PATIENT
  Age: 74 Year
  Sex: Female

DRUGS (9)
  1. REMICADE [Suspect]
     Indication: ARTHRITIS
     Route: 042
  2. AMLODIPINE [Concomitant]
     Indication: HYPERTENSION
     Route: 048
  3. HYDROCHLOROTHIAZIDE [Concomitant]
     Indication: HYPERTENSION
     Route: 048
  4. POTASSIUM CHLORIDE [Concomitant]
  5. SIMAVASTATIN [Concomitant]
     Route: 048
  6. ACTONEL [Concomitant]
     Indication: OSTEOPOROSIS
     Route: 048
  7. ASPIRIN [Concomitant]
     Route: 048
  8. METHOTREXATE [Concomitant]
     Indication: ARTHRITIS
  9. FOLIC ACID [Concomitant]
     Route: 048

REACTIONS (3)
  - CEREBROVASCULAR ACCIDENT [None]
  - HYPERTENSIVE CRISIS [None]
  - LEUKOARAIOSIS [None]
